FAERS Safety Report 5848227-6 (Version None)
Quarter: 2008Q3

REPORT INFORMATION
  Report Type: 
  Country: None (occurrence: None)
  Receive Date: 20080814
  Receipt Date: 20080814
  Transmission Date: 20090109
  Serious: Yes (Hospitalization)
  Sender: FDA-Public Use
  Company Number: None

PATIENT
  Sex: Female
  Weight: 73.9 kg

DRUGS (2)
  1. CYCLOPHOSPHAMIDE [Suspect]
     Dosage: 1075 MG
     Dates: end: 20080717
  2. DOXORUBICIN HYDROCHLORIDE [Suspect]
     Dosage: 108 MG
     Dates: end: 20080717

REACTIONS (4)
  - CHEST PAIN [None]
  - CHILLS [None]
  - FATIGUE [None]
  - PULMONARY EMBOLISM [None]
